FAERS Safety Report 21644778 (Version 3)
Quarter: 2024Q1

REPORT INFORMATION
  Report Type: Spontaneous
  Country: CA (occurrence: CA)
  Receive Date: 20221125
  Receipt Date: 20240117
  Transmission Date: 20240410
  Serious: Yes (Other)
  Sender: FDA-Public Use
  Company Number: CA-ADVANZ PHARMA-202210006953

PATIENT
  Age: 39 Year
  Sex: Female

DRUGS (4)
  1. OCALIVA [Suspect]
     Active Substance: OBETICHOLIC ACID
     Indication: Primary biliary cholangitis
     Dosage: 5 MG, QD, OCALIVA
     Route: 048
     Dates: start: 20171012
  2. OCALIVA [Suspect]
     Active Substance: OBETICHOLIC ACID
     Dosage: 10 MG, QD
     Route: 048
  3. URSO [Concomitant]
     Active Substance: URSODIOL
     Dosage: 1000 MG, QD (INADEQUATE RESPONSE TO UDCA MONOTHERAPY)
     Dates: start: 2013
  4. BEZAFIBRATE [Concomitant]
     Active Substance: BEZAFIBRATE
     Dosage: UNK (NOT TOLERANT TO BEZAFIBRATE)

REACTIONS (5)
  - Respiratory syncytial virus bronchiolitis [Not Recovered/Not Resolved]
  - Illness [Unknown]
  - Cough [Unknown]
  - Alanine aminotransferase abnormal [Recovered/Resolved]
  - Blood alkaline phosphatase abnormal [Recovering/Resolving]

NARRATIVE: CASE EVENT DATE: 20220629
